FAERS Safety Report 10027805 (Version 1)
Quarter: 2014Q1

REPORT INFORMATION
  Report Type: Spontaneous
  Country: US (occurrence: None)
  Receive Date: 20140304
  Receipt Date: 20140304
  Transmission Date: 20141002
  Serious: Yes (Hospitalization)
  Sender: FDA-Public Use
  Company Number: 387998

PATIENT
  Age: 57 Year
  Sex: Male
  Weight: 85.3 kg

DRUGS (1)
  1. NOVOLIN 70/30 [Suspect]
     Indication: TYPE 2 DIABETES MELLITUS
     Dosage: 10 U, SINGLE, SUBCUTANEOUS
     Route: 058
     Dates: start: 20111104, end: 20111104

REACTIONS (1)
  - Hypersensitivity [None]
